FAERS Safety Report 8337215-6 (Version None)
Quarter: 2012Q2

REPORT INFORMATION
  Report Type: 
  Country: None (occurrence: None)
  Receive Date: 20120504
  Receipt Date: 20120425
  Transmission Date: 20120825
  Serious: Yes (Hospitalization)
  Sender: FDA-Public Use
  Company Number: US-AMGEN-US214867

PATIENT
  Age: 29 Year
  Sex: Female

DRUGS (2)
  1. ENBREL [Suspect]
     Indication: PSORIATIC ARTHROPATHY
  2. ENBREL [Suspect]
     Indication: RHEUMATOID ARTHRITIS
     Dosage: 25 MG, QWK
     Route: 058
     Dates: start: 20020101

REACTIONS (4)
  - PREGNANCY [None]
  - PREMATURE SEPARATION OF PLACENTA [None]
  - THERAPEUTIC RESPONSE DECREASED [None]
  - MATERNAL EXPOSURE TIMING UNSPECIFIED [None]
